FAERS Safety Report 12455326 (Version 1)
Quarter: 2016Q2

REPORT INFORMATION
  Report Type: Spontaneous
  Country: US (occurrence: US)
  Receive Date: 20160610
  Receipt Date: 20160610
  Transmission Date: 20160815
  Serious: Yes (Other)
  Sender: FDA-Public Use
  Company Number: US-PROCTER_AND_GAMBLE-GS16065063

PATIENT

DRUGS (1)
  1. CREST BAKING SODA AND PEROXIDE WHITENING WITH TARTAR PROTECTION [Suspect]
     Active Substance: SODIUM FLUORIDE
     Dosage: UNKNOWN
     Route: 002

REACTIONS (3)
  - Tooth fracture [Unknown]
  - Sensitivity of teeth [Unknown]
  - Tooth disorder [Unknown]
